FAERS Safety Report 16212975 (Version 3)
Quarter: 2019Q2

REPORT INFORMATION
  Report Type: Report from Study
  Country: US (occurrence: US)
  Receive Date: 20190418
  Receipt Date: 20190607
  Transmission Date: 20190711
  Serious: Yes (Hospitalization, Other)
  Sender: FDA-Public Use
  Company Number: US-GILEAD-2019-0403071

PATIENT
  Age: 72 Year
  Sex: Female

DRUGS (2)
  1. AMBRISENTAN [Suspect]
     Active Substance: AMBRISENTAN
     Indication: PRODUCT USED FOR UNKNOWN INDICATION
     Dosage: 5 MG, QD
     Route: 048
     Dates: start: 20120828
  2. REVATIO [Concomitant]
     Active Substance: SILDENAFIL CITRATE

REACTIONS (10)
  - Wound secretion [Unknown]
  - Blood iron decreased [Unknown]
  - Loss of consciousness [Unknown]
  - Joint injury [Unknown]
  - Back injury [Unknown]
  - Transfusion [Unknown]
  - Fall [Recovered/Resolved]
  - Product use issue [Recovered/Resolved]
  - Weight decreased [Unknown]
  - Clavicle fracture [Unknown]
